FAERS Safety Report 16805424 (Version 1)
Quarter: 2019Q3

REPORT INFORMATION
  Report Type: Spontaneous
  Country: DE (occurrence: DE)
  Receive Date: 20190913
  Receipt Date: 20190913
  Transmission Date: 20191005
  Serious: Yes (Hospitalization, Other)
  Sender: FDA-Public Use
  Company Number: PHHY2019DE196280

PATIENT
  Age: 65 Year
  Sex: Male
  Weight: 78 kg

DRUGS (11)
  1. TAMSULOSIN [Suspect]
     Active Substance: TAMSULOSIN
     Indication: HYPERTENSION
  2. ERBITUX [Suspect]
     Active Substance: CETUXIMAB
     Dosage: 250 MG/M2, QW
     Route: 042
     Dates: start: 20130107, end: 20130107
  3. 5-FU [Suspect]
     Active Substance: FLUOROURACIL
     Indication: SQUAMOUS CELL CARCINOMA OF HEAD AND NECK
     Dosage: 1000 MG/M2, Q3W
     Route: 042
     Dates: start: 20121217, end: 20130107
  4. ACETYLSALICYLIC ACID [Concomitant]
     Active Substance: ASPIRIN
     Indication: CORONARY ARTERY DISEASE
     Dosage: 100 MG, UNK
     Route: 065
  5. ERBITUX [Suspect]
     Active Substance: CETUXIMAB
     Indication: SQUAMOUS CELL CARCINOMA OF HEAD AND NECK
     Dosage: 400 MG/M2, QW
     Route: 042
     Dates: start: 20121217, end: 20121217
  6. ERBITUX [Suspect]
     Active Substance: CETUXIMAB
     Dosage: 250 MG/M2, QW
     Route: 042
     Dates: start: 20121223, end: 20121223
  7. CISPLATIN. [Suspect]
     Active Substance: CISPLATIN
     Indication: SQUAMOUS CELL CARCINOMA OF HEAD AND NECK
     Dosage: 75 MG/M2, Q3W
     Route: 042
     Dates: start: 20121217, end: 20130107
  8. DELIX (RAMIPRIL) [Suspect]
     Active Substance: RAMIPRIL
     Dosage: 2.5 MG, QD
     Route: 065
     Dates: start: 20121128
  9. TAMSULOSIN [Suspect]
     Active Substance: TAMSULOSIN
     Indication: PROSTATIC DISORDER
     Dosage: 0.4 MG, UNK
     Route: 065
  10. ACETYLSALICYLIC ACID [Concomitant]
     Active Substance: ASPIRIN
     Indication: PROSTATIC DISORDER
  11. DELIX (RAMIPRIL) [Suspect]
     Active Substance: RAMIPRIL
     Indication: HYPERTENSION
     Dosage: 2.5 MG, UNK
     Route: 065

REACTIONS (5)
  - Diarrhoea [Recovered/Resolved]
  - Product use in unapproved indication [Recovered/Resolved]
  - Off label use [Recovered/Resolved]
  - Hypotension [Recovered/Resolved]
  - Syncope [Recovered/Resolved]

NARRATIVE: CASE EVENT DATE: 20121220
